FAERS Safety Report 8462349-5 (Version None)
Quarter: 2012Q2

REPORT INFORMATION
  Report Type: 
  Country: None (occurrence: None)
  Receive Date: 20120625
  Receipt Date: 20120620
  Transmission Date: 20120825
  Serious: No
  Sender: FDA-Public Use
  Company Number: US-PFIZER INC-2012149021

PATIENT
  Sex: Female
  Weight: 45 kg

DRUGS (6)
  1. AMBIEN [Concomitant]
     Dosage: UNK, 1X/DAY
  2. PREMARIN [Concomitant]
     Dosage: UNK
  3. REGLAN [Concomitant]
     Dosage: UNK
  4. XANAX [Concomitant]
     Dosage: 0.25 MG, UNK
  5. LYRICA [Suspect]
     Dosage: 50 MG, 3X/DAY
     Route: 048
  6. LYRICA [Suspect]
     Indication: FIBROMYALGIA
     Dosage: 50 MG, 2X/DAY
     Route: 048

REACTIONS (3)
  - SOMNOLENCE [None]
  - ACTIVITIES OF DAILY LIVING IMPAIRED [None]
  - FIBROMYALGIA [None]
